FAERS Safety Report 16749653 (Version 1)
Quarter: 2019Q3

REPORT INFORMATION
  Report Type: Spontaneous
  Country: DE (occurrence: DE)
  Receive Date: 20190828
  Receipt Date: 20190828
  Transmission Date: 20191005
  Serious: Yes (Other)
  Sender: FDA-Public Use
  Company Number: DE-ADIENNEP-2019AD000405

PATIENT
  Age: 4 Month
  Sex: Male

DRUGS (4)
  1. THIOTEPA. [Suspect]
     Active Substance: THIOTEPA
     Indication: ALLOGENIC STEM CELL TRANSPLANTATION
  2. FLUDARABINE [Suspect]
     Active Substance: FLUDARABINE PHOSPHATE
     Indication: ALLOGENIC STEM CELL TRANSPLANTATION
  3. TREOSULFAN [Suspect]
     Active Substance: TREOSULFAN
     Indication: ALLOGENIC STEM CELL TRANSPLANTATION
  4. MYCOPHENOLATE MOFETIL. [Suspect]
     Active Substance: MYCOPHENOLATE MOFETIL
     Indication: PROPHYLAXIS AGAINST GRAFT VERSUS HOST DISEASE

REACTIONS (15)
  - Retinal exudates [Unknown]
  - Retinal haemorrhage [Unknown]
  - Cytomegalovirus infection [Unknown]
  - Visual acuity reduced [Unknown]
  - Vitreous floaters [Unknown]
  - Vitritis [Unknown]
  - Visual field defect [Unknown]
  - Encephalitis cytomegalovirus [Unknown]
  - CNS ventriculitis [Unknown]
  - Cytomegalovirus chorioretinitis [Unknown]
  - Retinal injury [Unknown]
  - Varicella zoster virus infection [Unknown]
  - Retinal scar [Unknown]
  - Sight disability [Unknown]
  - Human herpesvirus 6 infection [Unknown]
